FAERS Safety Report 16989311 (Version 3)
Quarter: 2020Q3

REPORT INFORMATION
  Report Type: Spontaneous
  Country: US (occurrence: US)
  Receive Date: 20191104
  Receipt Date: 20200717
  Transmission Date: 20201102
  Serious: No
  Sender: FDA-Public Use
  Company Number: US-PFIZER INC-2019470211

PATIENT
  Age: 66 Year
  Sex: Female
  Weight: 72.57 kg

DRUGS (4)
  1. PREMARIN [Suspect]
     Active Substance: ESTROGENS, CONJUGATED
     Indication: OSTEOPOROSIS
     Dosage: 1.25 MG, UNK
     Route: 048
  2. PREMARIN [Suspect]
     Active Substance: ESTROGENS, CONJUGATED
     Indication: ALOPECIA
  3. PREMARIN [Suspect]
     Active Substance: ESTROGENS, CONJUGATED
     Indication: NIGHT SWEATS
  4. PREMARIN [Suspect]
     Active Substance: ESTROGENS, CONJUGATED
     Indication: DEPRESSION

REACTIONS (11)
  - Visual impairment [Unknown]
  - Off label use [Unknown]
  - Feeling of despair [Unknown]
  - Hot flush [Unknown]
  - Insomnia [Unknown]
  - Feeling abnormal [Unknown]
  - Dry skin [Unknown]
  - Product use in unapproved indication [Unknown]
  - Drug effective for unapproved indication [Unknown]
  - Mood swings [Unknown]
  - Malaise [Unknown]

NARRATIVE: CASE EVENT DATE: 2019
